FAERS Safety Report 21294289 (Version 1)
Quarter: 2022Q3

REPORT INFORMATION
  Report Type: Spontaneous
  Country: IT (occurrence: IT)
  Receive Date: 20220905
  Receipt Date: 20220905
  Transmission Date: 20221027
  Serious: Yes (Hospitalization, Other)
  Sender: FDA-Public Use
  Company Number: None

PATIENT
  Age: 13 Year
  Sex: Male
  Weight: 53 kg

DRUGS (3)
  1. AMOXICILLIN\CLAVULANIC ACID [Suspect]
     Active Substance: AMOXICILLIN\CLAVULANIC ACID
     Indication: Otitis externa
     Dosage: 1000 MG (SCONOSCIUTO, NOTO SOLO CHE IN DATA 19/08/22 MATTINA IL PAZIENTE HA ASSUNTO 1 COMPRESSA)
     Route: 048
     Dates: start: 20220812, end: 20220819
  2. CIPROFLOXACIN\DEXAMETHASONE [Concomitant]
     Active Substance: CIPROFLOXACIN\DEXAMETHASONE
     Indication: Product used for unknown indication
     Dosage: UNK
     Route: 065
  3. BETAMETHASONE SODIUM PHOSPHATE [Concomitant]
     Active Substance: BETAMETHASONE SODIUM PHOSPHATE
     Indication: Product used for unknown indication
     Dosage: 4 MG
     Route: 065

REACTIONS (6)
  - Adverse reaction [Unknown]
  - Pruritus [Unknown]
  - Rash [Unknown]
  - Pharyngeal erythema [Unknown]
  - Body temperature increased [Unknown]
  - Tympanic membrane disorder [Unknown]

NARRATIVE: CASE EVENT DATE: 20220815
